FAERS Safety Report 18257304 (Version 1)
Quarter: 2020Q3

REPORT INFORMATION
  Report Type: Report from Study
  Country: GB (occurrence: GB)
  Receive Date: 20200911
  Receipt Date: 20200911
  Transmission Date: 20201103
  Serious: Yes (Other)
  Sender: FDA-Public Use
  Company Number: GB-KYOWAKIRIN-2020BKK012450

PATIENT

DRUGS (1)
  1. CRYSVITA [Suspect]
     Active Substance: BUROSUMAB-TWZA
     Indication: PRODUCT USED FOR UNKNOWN INDICATION
     Dosage: 90 MG, 1X/4 WEEKS
     Route: 065
     Dates: start: 20200713

REACTIONS (5)
  - Arthralgia [Unknown]
  - Pain in jaw [Unknown]
  - Musculoskeletal stiffness [Recovering/Resolving]
  - Meniere^s disease [Unknown]
  - Pain [Unknown]

NARRATIVE: CASE EVENT DATE: 202007
